FAERS Safety Report 19075115 (Version 3)
Quarter: 2021Q4

REPORT INFORMATION
  Report Type: Report from Study
  Country: CN (occurrence: CN)
  Receive Date: 20210330
  Receipt Date: 20211007
  Transmission Date: 20220303
  Serious: Yes (Hospitalization)
  Sender: FDA-Public Use
  Company Number: CN-DSJP-DSJ-2021-107591

PATIENT
  Age: 71 Year
  Sex: Male
  Weight: 75 kg

DRUGS (4)
  1. AMLODIPINE BESYLATE\OLMESARTAN MEDOXOMIL [Suspect]
     Active Substance: AMLODIPINE BESYLATE\OLMESARTAN MEDOXOMIL
     Indication: Essential hypertension
     Dosage: 25 MG, BID
     Route: 048
     Dates: start: 20210126, end: 20210306
  2. CARVEDILOL [Concomitant]
     Active Substance: CARVEDILOL
     Indication: Essential hypertension
     Dosage: 1 DF, QN
     Route: 065
     Dates: start: 20210108
  3. BUTYPHTHALIDE AND SODIUM CHLORIDE [Concomitant]
     Indication: Nervous system disorder
     Dosage: 25 MG, QD
     Route: 041
     Dates: start: 20210308
  4. BETAHISTINC DIHYCROCHLOIDE [Concomitant]
     Indication: Ischaemic stroke
     Dosage: 20 MG, QD
     Route: 041
     Dates: start: 20210308

REACTIONS (6)
  - Cerebral infarction [Recovering/Resolving]
  - Type 2 diabetes mellitus [Recovering/Resolving]
  - Hepatic cyst [Recovering/Resolving]
  - Thyroid mass [Recovering/Resolving]
  - Upper gastrointestinal haemorrhage [Recovering/Resolving]
  - Anxiety [Recovering/Resolving]

NARRATIVE: CASE EVENT DATE: 20210303
